FAERS Safety Report 7006099-0 (Version None)
Quarter: 2010Q3

REPORT INFORMATION
  Report Type: 
  Country: None (occurrence: None)
  Receive Date: 20100921
  Receipt Date: 20100913
  Transmission Date: 20110219
  Serious: Yes (Hospitalization, Other)
  Sender: FDA-Public Use
  Company Number: CZ-PFIZER INC-2010091680

PATIENT
  Age: 52 Year
  Sex: Male
  Weight: 82 kg

DRUGS (3)
  1. BLINDED *NO SUBJECT DRUG [Suspect]
     Indication: RENAL CELL CARCINOMA
     Dosage: 50 MG, 1X/DAY, SCHEDULE 4/2
     Route: 048
     Dates: start: 20100122, end: 20100721
  2. BLINDED *PLACEBO [Suspect]
     Indication: RENAL CELL CARCINOMA
     Dosage: 50 MG, 1X/DAY, SCHEDULE 4/2
     Route: 048
     Dates: start: 20100122, end: 20100721
  3. SUNITINIB MALATE [Suspect]
     Indication: RENAL CELL CARCINOMA
     Dosage: 50 MG, 1X/DAY, SCHEDULE 4/2
     Route: 048
     Dates: start: 20100122, end: 20100721

REACTIONS (1)
  - MYOCARDIAL INFARCTION [None]
